FAERS Safety Report 5166341-8 (Version None)
Quarter: 2006Q4

REPORT INFORMATION
  Report Type: 
  Country: None (occurrence: None)
  Receive Date: 20061124
  Receipt Date: 20061115
  Transmission Date: 20070319
  Serious: Yes (Other)
  Sender: FDA-Public Use
  Company Number: 200410504BBE

PATIENT
  Sex: Female

DRUGS (3)
  1. HYPRHO-D [Suspect]
     Indication: PREGNANCY
  2. INJECTABLE GLOBULIN (IMMUNOGLOBULIN HUMAN NORMAL) [Suspect]
  3. IMMUNE GLOBULIN (HUMAN) [Suspect]

REACTIONS (15)
  - ABDOMINAL DISCOMFORT [None]
  - ADVERSE EVENT [None]
  - ANXIETY [None]
  - DEPRESSION [None]
  - DIARRHOEA [None]
  - DRUG EXPOSURE DURING PREGNANCY [None]
  - HEADACHE [None]
  - HYPERHIDROSIS [None]
  - INSOMNIA [None]
  - MECONIUM IN AMNIOTIC FLUID [None]
  - NAUSEA [None]
  - STRESS [None]
  - VAGINITIS BACTERIAL [None]
  - VOMITING [None]
  - WEIGHT DECREASED [None]
